FAERS Safety Report 7809877 (Version 2)
Quarter: 2013Q3

REPORT INFORMATION
  Report Type: Spontaneous
  Country: US (occurrence: US)
  Receive Date: 20110211
  Receipt Date: 20130807
  Transmission Date: 20140515
  Serious: Yes (Hospitalization, Other)
  Sender: FDA-Public Use
  Company Number: US-US-EMD SERONO, INC.-7040667

PATIENT
  Age: 47 Year
  Sex: Female

DRUGS (2)
  1. REBIF [Suspect]
     Indication: PRODUCT USED FOR UNKNOWN INDICATION
     Route: 058
     Dates: start: 20070124, end: 201307
  2. REBIF [Suspect]
     Route: 058

REACTIONS (3)
  - Gastrointestinal stromal tumour [Unknown]
  - Gastrointestinal carcinoma [Unknown]
  - Injection site pain [Unknown]
